FAERS Safety Report 7499494-7 (Version None)
Quarter: 2011Q2

REPORT INFORMATION
  Report Type: 
  Country: None (occurrence: None)
  Receive Date: 20110524
  Receipt Date: 20110516
  Transmission Date: 20111010
  Serious: Yes (Other)
  Sender: FDA-Public Use
  Company Number: PHHY2010BR82940

PATIENT
  Sex: Female

DRUGS (1)
  1. FORMOTEROL FUMARATE [Suspect]
     Dosage: UNK

REACTIONS (3)
  - PNEUMONIA [None]
  - MALAISE [None]
  - INFLUENZA [None]
